FAERS Safety Report 8971256 (Version 2)
Quarter: 2013Q1

REPORT INFORMATION
  Report Type: Spontaneous
  Country: JP (occurrence: JP)
  Receive Date: 20121217
  Receipt Date: 20130102
  Transmission Date: 20140127
  Serious: Yes (Death)
  Sender: FDA-Public Use
  Company Number: JP-GLAXOSMITHKLINE-B0852503A

PATIENT
  Age: 49 Year
  Sex: Female

DRUGS (3)
  1. PAXIL [Suspect]
     Indication: DEPRESSION
     Route: 048
     Dates: start: 201106, end: 201108
  2. HYPNOTIC + SEDATIVE [Concomitant]
     Route: 048
  3. ANTI-ANXIETY MED- NAME UNKNOWN [Concomitant]
     Route: 048

REACTIONS (5)
  - Completed suicide [Fatal]
  - Vomiting [Recovered/Resolved]
  - Weight decreased [Unknown]
  - Abnormal behaviour [Unknown]
  - Akathisia [Unknown]
